FAERS Safety Report 14946165 (Version 7)
Quarter: 2019Q4

REPORT INFORMATION
  Report Type: Report from Study
  Country: ES (occurrence: ES)
  Receive Date: 20180529
  Receipt Date: 20191022
  Transmission Date: 20200122
  Serious: Yes (Death, Hospitalization)
  Sender: FDA-Public Use
  Company Number: ES-ROCHE-2114858

PATIENT
  Age: 61 Year
  Sex: Male
  Weight: 62 kg

DRUGS (39)
  1. FENTANILO [FENTANYL] [Concomitant]
     Route: 062
     Dates: start: 20180228, end: 20180331
  2. LACTULOSE. [Concomitant]
     Active Substance: LACTULOSE
     Route: 048
     Dates: start: 20180331
  3. DEXAMETHASONE. [Concomitant]
     Active Substance: DEXAMETHASONE
     Route: 065
     Dates: start: 20180331
  4. PREGABALIN. [Concomitant]
     Active Substance: PREGABALIN
     Route: 065
     Dates: start: 20180331
  5. LORAZEPAM. [Concomitant]
     Active Substance: LORAZEPAM
     Route: 048
     Dates: start: 20180401
  6. MORPHINE HYDROCHLORIDE [Concomitant]
     Active Substance: MORPHINE HYDROCHLORIDE
     Route: 042
     Dates: start: 20180331, end: 20180331
  7. FORTASEC [LOPERAMIDE HYDROCHLORIDE] [Concomitant]
     Route: 065
     Dates: start: 20180508, end: 20180508
  8. PARACETAMOL [Concomitant]
     Active Substance: ACETAMINOPHEN
     Route: 065
     Dates: start: 20180427
  9. ATEZOLIZUMAB. [Suspect]
     Active Substance: ATEZOLIZUMAB
     Indication: HORMONE-REFRACTORY PROSTATE CANCER
     Dosage: FIXED DOSE OF 1200 MILLIGRAMS (MG), INTRAVENOUS (IV) INFUSION ON DAY 1 OF EACH 21-DAY CYCLE;?DATE OF
     Route: 042
     Dates: start: 20180301
  10. DULCOLAXO [Concomitant]
     Route: 048
     Dates: start: 20180331
  11. MORPHINE HYDROCHLORIDE [Concomitant]
     Active Substance: MORPHINE HYDROCHLORIDE
     Route: 058
     Dates: start: 20180328, end: 20180328
  12. MEROPENEM. [Concomitant]
     Active Substance: MEROPENEM
     Route: 065
     Dates: start: 20180430, end: 20180508
  13. ONDANSETRON [Concomitant]
     Active Substance: ONDANSETRON
     Route: 065
     Dates: start: 20140509, end: 20180509
  14. ADOLONTA [Concomitant]
     Active Substance: TRAMADOL HYDROCHLORIDE
     Route: 065
     Dates: start: 20160614, end: 20180328
  15. PREDNISONE. [Concomitant]
     Active Substance: PREDNISONE
     Route: 048
     Dates: start: 20160614
  16. PRIMPERAN [Concomitant]
     Active Substance: METOCLOPRAMIDE HYDROCHLORIDE
     Route: 048
     Dates: start: 20180331
  17. ENZALUTAMIDE [Suspect]
     Active Substance: ENZALUTAMIDE
     Indication: HORMONE-REFRACTORY PROSTATE CANCER
     Dosage: DATE OF MOST RECENT DOSE PRIOR TO AE: 26/APR/2018 + DATE OF MOST RECENT DOSE PRIOR TO SAE: 13/MAY/20
     Route: 048
     Dates: start: 20180301
  18. OXICODONA [OXYCODONE] [Concomitant]
     Active Substance: OXYCODONE
     Route: 048
     Dates: start: 20180401
  19. DULOXETINE. [Concomitant]
     Active Substance: DULOXETINE
     Route: 048
     Dates: start: 20180331
  20. RED BLOOD CELLS [Concomitant]
     Active Substance: HUMAN RED BLOOD CELL
     Dosage: DOSE: 1 UNIT
     Route: 042
     Dates: start: 20180428, end: 20180428
  21. LINEZOLID. [Concomitant]
     Active Substance: LINEZOLID
     Route: 065
     Dates: start: 20180428
  22. OXYNORM [Concomitant]
     Active Substance: OXYCODONE HYDROCHLORIDE
     Route: 048
     Dates: start: 20180401
  23. LORAZEPAM. [Concomitant]
     Active Substance: LORAZEPAM
     Route: 048
     Dates: start: 20180331
  24. METHADONE [Concomitant]
     Active Substance: METHADONE HYDROCHLORIDE
     Route: 042
     Dates: start: 20180509
  25. ENANTYUM [Concomitant]
     Active Substance: DEXKETOPROFEN TROMETAMOL
     Route: 048
     Dates: start: 20160614, end: 20180328
  26. ENANTYUM [Concomitant]
     Active Substance: DEXKETOPROFEN TROMETAMOL
     Route: 065
     Dates: start: 20180430
  27. PRIMPERAN [Concomitant]
     Active Substance: METOCLOPRAMIDE HYDROCHLORIDE
     Dosage: 1 TABLE SPOON
     Route: 048
     Dates: start: 20180321
  28. ORAMORPH SR SUSTAINED RELEASE [Concomitant]
     Active Substance: MORPHINE SULFATE
     Route: 048
     Dates: start: 20180328
  29. FENTANYL. [Concomitant]
     Active Substance: FENTANYL
     Route: 062
     Dates: start: 20180330
  30. OMEPRAZOLE. [Concomitant]
     Active Substance: OMEPRAZOLE
     Route: 048
     Dates: start: 20180301
  31. VANCOMYCIN [Concomitant]
     Active Substance: VANCOMYCIN
     Route: 048
     Dates: start: 20180409, end: 20180415
  32. VANCOMYCIN [Concomitant]
     Active Substance: VANCOMYCIN
     Route: 065
     Dates: start: 20180508
  33. LOPERAMIDE [Concomitant]
     Active Substance: LOPERAMIDE
     Route: 065
     Dates: start: 20180506, end: 20180506
  34. OXICODONA [OXYCODONE] [Concomitant]
     Active Substance: OXYCODONE
     Route: 048
     Dates: start: 20180331
  35. FORTASEC [LOPERAMIDE HYDROCHLORIDE] [Concomitant]
     Route: 065
     Dates: start: 20180430, end: 20180430
  36. PRIMPERAN [Concomitant]
     Active Substance: METOCLOPRAMIDE HYDROCHLORIDE
     Route: 065
     Dates: start: 20180430, end: 20180430
  37. FENTANYL. [Concomitant]
     Active Substance: FENTANYL
     Route: 065
     Dates: start: 20180427
  38. IBUPROFEN. [Concomitant]
     Active Substance: IBUPROFEN
     Route: 065
     Dates: start: 20180424
  39. METRONIDAZOLE. [Concomitant]
     Active Substance: METRONIDAZOLE
     Route: 065
     Dates: start: 20180504, end: 20180508

REACTIONS (2)
  - Pyrexia [Recovered/Resolved]
  - Clostridium difficile colitis [Fatal]

NARRATIVE: CASE EVENT DATE: 20180421
